FAERS Safety Report 7086108-3 (Version None)
Quarter: 2010Q4

REPORT INFORMATION
  Report Type: 
  Country: None (occurrence: None)
  Receive Date: 20101105
  Receipt Date: 20101027
  Transmission Date: 20110411
  Serious: Yes (Other)
  Sender: FDA-Public Use
  Company Number: B0669906A

PATIENT
  Sex: Female
  Weight: 71 kg

DRUGS (7)
  1. SERETIDE [Suspect]
     Indication: PRODUCT USED FOR UNKNOWN INDICATION
     Dosage: 1PUFF TWICE PER DAY
     Route: 055
  2. SERETIDE [Suspect]
     Dosage: 1PUFF TWICE PER DAY
     Route: 055
  3. ALENDRONIC ACID [Concomitant]
     Dosage: 70MG WEEKLY
     Route: 048
  4. ALFACALCIDOL [Concomitant]
     Dosage: 250MG PER DAY
     Route: 048
  5. BRICANYL TURBOHALER [Concomitant]
     Dosage: 1PUFF TWICE PER DAY
     Route: 055
  6. DILTIAZEM [Concomitant]
     Dosage: 300MG PER DAY
     Route: 048
  7. OMEPRAZOLE [Concomitant]
     Dosage: 20MG PER DAY
     Route: 048

REACTIONS (5)
  - DEVICE FAILURE [None]
  - DYSPNOEA [None]
  - INTENTIONAL OVERDOSE [None]
  - PRODUCT QUALITY ISSUE [None]
  - SPUTUM RETENTION [None]
